FAERS Safety Report 21369436 (Version 1)
Quarter: 2022Q3

REPORT INFORMATION
  Report Type: Spontaneous
  Country: US (occurrence: US)
  Receive Date: 20220923
  Receipt Date: 20220923
  Transmission Date: 20221027
  Serious: Yes (Other)
  Sender: FDA-Public Use
  Company Number: US-ROCHE-3177335

PATIENT
  Sex: Female
  Weight: 72.639 kg

DRUGS (11)
  1. CLONAZEPAM [Suspect]
     Active Substance: CLONAZEPAM
     Indication: Product used for unknown indication
     Dosage: DAILY DOSE: 1 MILLIGRAM
     Route: 048
  2. XOLAIR [Suspect]
     Active Substance: OMALIZUMAB
     Indication: Chronic spontaneous urticaria
     Dosage: 300 MG, EVERY 4 WEEKS
     Route: 058
  3. POTASSIUM [Concomitant]
     Active Substance: POTASSIUM
  4. SINGULAIR [Concomitant]
     Active Substance: MONTELUKAST SODIUM
     Dosage: DAILY DOSE: 10 MILLIGRAM
     Route: 048
  5. EDARBYCLOR [Concomitant]
     Active Substance: AZILSARTAN KAMEDOXOMIL\CHLORTHALIDONE
     Dosage: 40-12.5MG
     Route: 048
  6. OMEPRAZOLE [Concomitant]
     Active Substance: OMEPRAZOLE
     Dosage: 1 CAPSULE 30 MINUTES BEFORE THE MEAL?DAILY DOSE: 40 MILLIGRAM
     Route: 048
  7. FERROUS SULFATE [Concomitant]
     Active Substance: FERROUS SULFATE
     Dosage: DAILY DOSE: 325 MILLIGRAM
     Route: 048
  8. SYNTHROID [Concomitant]
     Active Substance: LEVOTHYROXINE SODIUM
     Dosage: 100 MCG TAKE 1 TABLET IN THE MORNING ON AN EMPTY STOMACH
     Route: 048
  9. HYDROXYZINE HYDROCHLORIDE [Concomitant]
     Active Substance: HYDROXYZINE HYDROCHLORIDE
     Indication: Chronic spontaneous urticaria
     Dosage: TAKE 1 TABLET EVERY 8 HOURS AS NEEDED
     Route: 048
  10. FAMOTIDINE [Concomitant]
     Active Substance: FAMOTIDINE
     Indication: Chronic spontaneous urticaria
     Dosage: 40 MG, BID?DAILY DOSE: 80 MILLIGRAM
     Route: 048
  11. Cetrizine HCL [Concomitant]
     Indication: Chronic spontaneous urticaria
     Dosage: BID?DAILY DOSE: 20 MILLIGRAM
     Route: 048

REACTIONS (4)
  - Hypothyroidism [Unknown]
  - Pruritus [Unknown]
  - Urticaria [Unknown]
  - Mechanical urticaria [Unknown]
